FAERS Safety Report 7668594-0 (Version None)
Quarter: 2011Q3

REPORT INFORMATION
  Report Type: 
  Country: None (occurrence: None)
  Receive Date: 20110808
  Receipt Date: 20110808
  Transmission Date: 20111222
  Serious: No
  Sender: FDA-Public Use
  Company Number: None

PATIENT
  Age: 57 Year
  Sex: Female
  Weight: 90.718 kg

DRUGS (2)
  1. AVELOX [Concomitant]
     Indication: COUGH
     Dosage: AVELOX
  2. AVELOX [Suspect]
     Indication: COUGH
     Dosage: AVELOX
     Dates: start: 20070701, end: 20070705

REACTIONS (14)
  - ARTHRALGIA [None]
  - HEADACHE [None]
  - MUSCLE SPASMS [None]
  - RASH [None]
  - TENDON PAIN [None]
  - ABDOMINAL DISCOMFORT [None]
  - MENISCUS LESION [None]
  - VOMITING [None]
  - INSOMNIA [None]
  - MYALGIA [None]
  - PAIN IN EXTREMITY [None]
  - NEUROPATHY PERIPHERAL [None]
  - GAIT DISTURBANCE [None]
  - COUGH [None]
